FAERS Safety Report 5396952-6 (Version None)
Quarter: 2007Q3

REPORT INFORMATION
  Report Type: 
  Country: None (occurrence: None)
  Receive Date: 20070718
  Receipt Date: 20061201
  Transmission Date: 20080115
  Serious: Yes (Other)
  Sender: FDA-Public Use
  Company Number: 2006148797

PATIENT
  Sex: Female

DRUGS (2)
  1. CELEBREX [Suspect]
     Indication: PAIN
     Dosage: ORAL
     Route: 048
  2. VIOXX [Suspect]
     Dosage: ORAL
     Route: 048

REACTIONS (3)
  - CEREBROVASCULAR ACCIDENT [None]
  - EMBOLISM [None]
  - MYOCARDIAL INFARCTION [None]
